FAERS Safety Report 14180943 (Version 1)
Quarter: 2017Q4

REPORT INFORMATION
  Report Type: Spontaneous
  Country: US (occurrence: US)
  Receive Date: 20171110
  Receipt Date: 20171110
  Transmission Date: 20180321
  Serious: Yes (Other)
  Sender: FDA-Public Use
  Company Number: None

PATIENT
  Age: 16 Year
  Sex: Female
  Weight: 75.6 kg

DRUGS (6)
  1. MG [Concomitant]
     Active Substance: MAGNESIUM
  2. MULTIVITAMIN [Concomitant]
     Active Substance: VITAMINS
  3. VITAMIN D [Concomitant]
     Active Substance: CHOLECALCIFEROL
  4. ALGAE OIL [Concomitant]
  5. SAME [Concomitant]
  6. BOTOX [Suspect]
     Active Substance: ONABOTULINUMTOXINA
     Indication: MIGRAINE
     Dosage: ?          OTHER FREQUENCY:33 INJECTIONS;?
     Route: 030
     Dates: start: 20170802, end: 20170802

REACTIONS (5)
  - Musculoskeletal pain [None]
  - Neck pain [None]
  - Pain [None]
  - Skin warm [None]
  - Spinal pain [None]

NARRATIVE: CASE EVENT DATE: 20170802
